FAERS Safety Report 4782542-2 (Version None)
Quarter: 2005Q3

REPORT INFORMATION
  Report Type: 
  Country: None (occurrence: None)
  Receive Date: 20050929
  Receipt Date: 20050302
  Transmission Date: 20060218
  Serious: No
  Sender: FDA-Public Use
  Company Number: US-GLAXOSMITHKLINE-A0547960A

PATIENT
  Age: 51 Year
  Sex: Female
  Weight: 81.8 kg

DRUGS (5)
  1. COREG [Suspect]
     Dosage: 3.125MG TWICE PER DAY
     Route: 048
  2. NORVASC [Concomitant]
     Dosage: 5MG PER DAY
     Route: 065
  3. SYNTHROID [Concomitant]
  4. TRAMADOL [Concomitant]
  5. UNKNOWN MEDICATION [Concomitant]

REACTIONS (8)
  - AGEUSIA [None]
  - AGITATION [None]
  - ANXIETY [None]
  - DEPRESSION [None]
  - DISTURBANCE IN ATTENTION [None]
  - INSOMNIA [None]
  - PALPITATIONS [None]
  - PANIC ATTACK [None]
